FAERS Safety Report 20369226 (Version 1)
Quarter: 2022Q1

REPORT INFORMATION
  Report Type: Spontaneous
  Country: US (occurrence: None)
  Receive Date: 20220122
  Receipt Date: 20220122
  Transmission Date: 20220423
  Serious: Yes (Other)
  Sender: FDA-Public Use
  Company Number: None

PATIENT
  Age: 57 Year
  Sex: Female
  Weight: 74.25 kg

DRUGS (1)
  1. HUMIRA [Suspect]
     Active Substance: ADALIMUMAB
     Indication: Rheumatoid arthritis
     Dosage: FREQUENCY : EVERY OTHER WEEK;?
     Route: 058
     Dates: start: 20210718, end: 20211121

REACTIONS (7)
  - COVID-19 [None]
  - Skin discolouration [None]
  - Injection site swelling [None]
  - Injection site erythema [None]
  - Injection site pruritus [None]
  - Injection site warmth [None]
  - Illness [None]

NARRATIVE: CASE EVENT DATE: 20211121
